FAERS Safety Report 12705481 (Version 1)
Quarter: 2016Q3

REPORT INFORMATION
  Report Type: Spontaneous
  Country: KR (occurrence: KR)
  Receive Date: 20160901
  Receipt Date: 20160901
  Transmission Date: 20161109
  Serious: Yes (Other)
  Sender: FDA-Public Use
  Company Number: KR-ASTRAZENECA-2016SE91435

PATIENT
  Age: 40 Year
  Sex: Male

DRUGS (7)
  1. HUMEDIX LINCOMYCIN [Concomitant]
     Dosage: 600MG
  2. CLASIN [Concomitant]
     Dosage: 500 MG
     Route: 048
  3. NEXIUM [Suspect]
     Active Substance: ESOMEPRAZOLE MAGNESIUM
     Route: 048
     Dates: start: 20160813, end: 20160813
  4. PRIMALAN [Concomitant]
     Active Substance: MEQUITAZINE
     Dosage: 7.5 MG
  5. ALBIS D [Concomitant]
  6. ELSTEIN [Concomitant]
     Dosage: 900 MG
     Route: 048
  7. LOCPREN [Concomitant]
     Dosage: 180 MG
     Route: 048

REACTIONS (3)
  - Shock [Unknown]
  - Burning sensation [Unknown]
  - Dyspepsia [Unknown]

NARRATIVE: CASE EVENT DATE: 20160813
